FAERS Safety Report 5332423-0 (Version None)
Quarter: 2007Q2

REPORT INFORMATION
  Report Type: 
  Country: None (occurrence: None)
  Receive Date: 20070306
  Receipt Date: 20060419
  Transmission Date: 20071010
  Serious: Yes (Hospitalization)
  Sender: FDA-Public Use
  Company Number: A03200602456

PATIENT
  Age: 70 Year
  Sex: Female

DRUGS (3)
  1. PLAVIX [Suspect]
     Indication: COAGULOPATHY
     Dosage: 600 MG BOLUS - ORAL
     Route: 048
  2. ANGIOMAX [Suspect]
     Indication: COAGULOPATHY
     Dosage: 0.75 MG/KG ONCE - INTRAVENOUS BOLUS
     Route: 040
  3. ANGIOMAX [Suspect]
     Indication: COAGULOPATHY
     Dosage: 1.75 MG /KG/HR IV INFUSION  - INTRAVENOUS NOS
     Route: 042

REACTIONS (3)
  - CHEST PAIN [None]
  - CORONARY ARTERY OCCLUSION [None]
  - OVERDOSE [None]
